FAERS Safety Report 18395139 (Version 2)
Quarter: 2020Q4

REPORT INFORMATION
  Report Type: Spontaneous
  Country: IT (occurrence: IT)
  Receive Date: 20201016
  Receipt Date: 20201225
  Transmission Date: 20210114
  Serious: Yes (Hospitalization)
  Sender: FDA-Public Use
  Company Number: IT-ROCHE-2695369

PATIENT
  Age: 57 Year
  Sex: Female

DRUGS (6)
  1. RANITIDINE. [Concomitant]
     Active Substance: RANITIDINE
     Indication: ADENOCARCINOMA OF COLON
     Route: 040
     Dates: start: 20190306
  2. TROPISETRON [Concomitant]
     Active Substance: TROPISETRON
     Indication: ADENOCARCINOMA OF COLON
     Route: 040
     Dates: start: 20190306
  3. PARACETAMOL [Concomitant]
     Active Substance: ACETAMINOPHEN
     Indication: PYREXIA
     Route: 048
     Dates: start: 20190314
  4. DEXAMETHASONE. [Concomitant]
     Active Substance: DEXAMETHASONE
     Indication: ADENOCARCINOMA OF COLON
     Route: 040
     Dates: start: 20190306
  5. CAPECITABINE. [Suspect]
     Active Substance: CAPECITABINE
     Indication: ADENOCARCINOMA OF COLON
     Route: 040
     Dates: start: 20190306
  6. OXALIPLATIN. [Concomitant]
     Active Substance: OXALIPLATIN
     Indication: ADENOCARCINOMA OF COLON
     Route: 040
     Dates: start: 20190306

REACTIONS (3)
  - Hyperhidrosis [Recovering/Resolving]
  - Muscular weakness [Recovering/Resolving]
  - Diarrhoea [Recovering/Resolving]

NARRATIVE: CASE EVENT DATE: 20190315
